FAERS Safety Report 14174796 (Version 2)
Quarter: 2018Q4

REPORT INFORMATION
  Report Type: Spontaneous
  Country: US (occurrence: US)
  Receive Date: 20171109
  Receipt Date: 20181026
  Transmission Date: 20190204
  Serious: No
  Sender: FDA-Public Use
  Company Number: US-ALLERGAN-1723540US

PATIENT
  Age: 74 Year
  Sex: Male
  Weight: 76.19 kg

DRUGS (4)
  1. ALPHAGAN P [Suspect]
     Active Substance: BRIMONIDINE TARTRATE
     Indication: GLAUCOMA
     Dosage: 2 GTT, BID
     Route: 047
     Dates: start: 201701
  2. LUMIGAN [Suspect]
     Active Substance: BIMATOPROST
     Indication: GLAUCOMA
     Dosage: 2 GTT, QD
     Route: 047
  3. TIMOLOL. [Concomitant]
     Active Substance: TIMOLOL
     Indication: GLAUCOMA
     Dosage: UNK, UNKNOWN
     Route: 047
     Dates: end: 201701
  4. LUMIGAN [Suspect]
     Active Substance: BIMATOPROST
     Dosage: 2 UNK, UNK
     Route: 047

REACTIONS (4)
  - Dizziness [Recovered/Resolved]
  - Accidental exposure to product [Unknown]
  - Hypotension [Recovered/Resolved]
  - Product dropper issue [Unknown]

NARRATIVE: CASE EVENT DATE: 201701
